FAERS Safety Report 10347027 (Version 2)
Quarter: 2014Q3

REPORT INFORMATION
  Report Type: Spontaneous
  Country: BR (occurrence: BR)
  Receive Date: 20140729
  Receipt Date: 20140729
  Transmission Date: 20150326
  Serious: Yes (Other)
  Sender: FDA-Public Use
  Company Number: PHHY2014BR079123

PATIENT
  Sex: Male
  Weight: 99 kg

DRUGS (1)
  1. TEGRETOL [Suspect]
     Active Substance: CARBAMAZEPINE
     Indication: CONVULSION
     Dosage: 1 DF, DAILY
     Route: 048

REACTIONS (3)
  - Somnolence [Recovered/Resolved]
  - Learning disorder [Recovered/Resolved]
  - Feeling abnormal [Recovered/Resolved]
